FAERS Safety Report 4521110-4 (Version None)
Quarter: 2005Q1

REPORT INFORMATION
  Report Type: 
  Country: None (occurrence: None)
  Receive Date: 20041206
  Receipt Date: 20041122
  Transmission Date: 20050727
  Serious: Yes (Death)
  Sender: FDA-Public Use
  Company Number: M2004-1801

PATIENT
  Age: 51 Year
  Sex: Male

DRUGS (5)
  1. DICLOFENAC UNK, UNKNOWN MANUFACTURER [Suspect]
     Dosage: 50MG TID
  2. TEMAZEPAM [Suspect]
     Dosage: 10 MG DAILY
  3. ACETAMINOPHEN W/ CODEINE [Suspect]
     Dosage: PRN
  4. VORICONAZOLE [Suspect]
     Indication: ASPERGILLOSIS
     Dosage: 180MG/ 12 HOURS AND 2 DOSES OF 360MG
  5. DOTHIEPIN (DOTHIEPIN) [Suspect]
     Dosage: 100MG QHS

REACTIONS (11)
  - ACUTE RESPIRATORY DISTRESS SYNDROME [None]
  - CONDITION AGGRAVATED [None]
  - CONFUSIONAL STATE [None]
  - DRUG LEVEL INCREASED [None]
  - FEELING DRUNK [None]
  - HEPATIC CIRRHOSIS [None]
  - HYPOGLYCAEMIA [None]
  - LYMPHOPENIA [None]
  - PERITONEAL HAEMORRHAGE [None]
  - PYREXIA [None]
  - RESPIRATORY FAILURE [None]
